FAERS Safety Report 23805457 (Version 2)
Quarter: 2024Q2

REPORT INFORMATION
  Report Type: Spontaneous
  Country: US (occurrence: None)
  Receive Date: 20240502
  Receipt Date: 20240612
  Transmission Date: 20240716
  Serious: Yes (Other)
  Sender: FDA-Public Use
  Company Number: US-ROCHE-3553750

PATIENT

DRUGS (2)
  1. ACTIVASE [Suspect]
     Active Substance: ALTEPLASE
     Indication: Cerebrovascular accident
     Route: 065
  2. ACTIVASE [Suspect]
     Active Substance: ALTEPLASE

REACTIONS (2)
  - Product complaint [Unknown]
  - No adverse event [Unknown]

NARRATIVE: CASE EVENT DATE: 20240423
